FAERS Safety Report 12491662 (Version 2)
Quarter: 2016Q3

REPORT INFORMATION
  Report Type: Spontaneous
  Country: US (occurrence: US)
  Receive Date: 20160623
  Receipt Date: 20160707
  Transmission Date: 20161109
  Serious: No
  Sender: FDA-Public Use
  Company Number: US-PFIZER INC-2016311932

PATIENT
  Sex: Female

DRUGS (1)
  1. SERTRALINE HCL [Suspect]
     Active Substance: SERTRALINE HYDROCHLORIDE
     Dosage: SPLITTING THE 50MG TABLETS IN HALF, AND TAKING 1.5 TABLETS FOR 75MG

REACTIONS (2)
  - Rash [Unknown]
  - Drug hypersensitivity [Unknown]
